FAERS Safety Report 7047925-9 (Version None)
Quarter: 2010Q4

REPORT INFORMATION
  Report Type: 
  Country: None (occurrence: None)
  Receive Date: 20101014
  Receipt Date: 20101014
  Transmission Date: 20110411
  Serious: Yes (Hospitalization)
  Sender: FDA-Public Use
  Company Number: None

PATIENT
  Age: 72 Year
  Sex: Male
  Weight: 85 kg

DRUGS (24)
  1. DECITABINE - 0.2MG / KG SUB-Q INJECTION 3X PER WEEK [Suspect]
     Indication: MYELODYSPLASTIC SYNDROME
     Dosage: 16.8 MG SQ INJECTIO 3X/WK
     Route: 058
     Dates: start: 20100920
  2. DECITABINE - 0.2MG / KG SUB-Q INJECTION 3X PER WEEK [Suspect]
     Indication: REFRACTORY ANAEMIA WITH AN EXCESS OF BLASTS
     Dosage: 16.8 MG SQ INJECTIO 3X/WK
     Route: 058
     Dates: start: 20100920
  3. DECITABINE - 0.2MG / KG SUB-Q INJECTION 3X PER WEEK [Suspect]
     Indication: MYELODYSPLASTIC SYNDROME
     Dosage: 16.8 MG SQ INJECTIO 3X/WK
     Route: 058
     Dates: start: 20100927
  4. DECITABINE - 0.2MG / KG SUB-Q INJECTION 3X PER WEEK [Suspect]
     Indication: REFRACTORY ANAEMIA WITH AN EXCESS OF BLASTS
     Dosage: 16.8 MG SQ INJECTIO 3X/WK
     Route: 058
     Dates: start: 20100927
  5. DECITABINE - 0.2MG / KG SUB-Q INJECTION 3X PER WEEK [Suspect]
     Indication: MYELODYSPLASTIC SYNDROME
     Dosage: 16.8 MG SQ INJECTIO 3X/WK
     Route: 058
     Dates: start: 20100928
  6. DECITABINE - 0.2MG / KG SUB-Q INJECTION 3X PER WEEK [Suspect]
     Indication: REFRACTORY ANAEMIA WITH AN EXCESS OF BLASTS
     Dosage: 16.8 MG SQ INJECTIO 3X/WK
     Route: 058
     Dates: start: 20100928
  7. DECITABINE - 0.2MG / KG SUB-Q INJECTION 3X PER WEEK [Suspect]
     Indication: MYELODYSPLASTIC SYNDROME
     Dosage: 16.8 MG SQ INJECTIO 3X/WK
     Route: 058
     Dates: start: 20101001
  8. DECITABINE - 0.2MG / KG SUB-Q INJECTION 3X PER WEEK [Suspect]
     Indication: REFRACTORY ANAEMIA WITH AN EXCESS OF BLASTS
     Dosage: 16.8 MG SQ INJECTIO 3X/WK
     Route: 058
     Dates: start: 20101001
  9. DECITABINE - 0.2MG / KG SUB-Q INJECTION 3X PER WEEK [Suspect]
     Indication: MYELODYSPLASTIC SYNDROME
     Dosage: 16.8 MG SQ INJECTIO 3X/WK
     Route: 058
     Dates: start: 20101004
  10. DECITABINE - 0.2MG / KG SUB-Q INJECTION 3X PER WEEK [Suspect]
     Indication: REFRACTORY ANAEMIA WITH AN EXCESS OF BLASTS
     Dosage: 16.8 MG SQ INJECTIO 3X/WK
     Route: 058
     Dates: start: 20101004
  11. DECITABINE - 0.2MG / KG SUB-Q INJECTION 3X PER WEEK [Suspect]
     Indication: MYELODYSPLASTIC SYNDROME
     Dosage: 16.8 MG SQ INJECTIO 3X/WK
     Route: 058
     Dates: start: 20101005
  12. DECITABINE - 0.2MG / KG SUB-Q INJECTION 3X PER WEEK [Suspect]
     Indication: REFRACTORY ANAEMIA WITH AN EXCESS OF BLASTS
     Dosage: 16.8 MG SQ INJECTIO 3X/WK
     Route: 058
     Dates: start: 20101005
  13. DECITABINE - 0.2MG / KG SUB-Q INJECTION 3X PER WEEK [Suspect]
     Indication: MYELODYSPLASTIC SYNDROME
     Dosage: 16.8 MG SQ INJECTIO 3X/WK
     Route: 058
     Dates: start: 20101008
  14. DECITABINE - 0.2MG / KG SUB-Q INJECTION 3X PER WEEK [Suspect]
     Indication: REFRACTORY ANAEMIA WITH AN EXCESS OF BLASTS
     Dosage: 16.8 MG SQ INJECTIO 3X/WK
     Route: 058
     Dates: start: 20101008
  15. ACYCLOVIR SODIUM [Concomitant]
  16. LEVAQUIN [Concomitant]
  17. DESFERAL [Concomitant]
  18. PROTEGRA [Concomitant]
  19. AVODART [Concomitant]
  20. NEXIUM [Concomitant]
  21. DOCUSATE [Concomitant]
  22. LASIX [Concomitant]
  23. POSACONAZOLE [Concomitant]
  24. K-DUR [Concomitant]

REACTIONS (5)
  - BLOOD POTASSIUM DECREASED [None]
  - BLOOD URINE PRESENT [None]
  - DYSURIA [None]
  - HAEMOGLOBIN DECREASED [None]
  - PLATELET COUNT DECREASED [None]
